FAERS Safety Report 14583324 (Version 1)
Quarter: 2018Q1

REPORT INFORMATION
  Report Type: Spontaneous
  Country: CH (occurrence: CH)
  Receive Date: 20180228
  Receipt Date: 20180228
  Transmission Date: 20180509
  Serious: Yes (Hospitalization)
  Sender: FDA-Public Use
  Company Number: CH-OTSUKA-DJ20116660

PATIENT
  Age: 58 Year
  Sex: Female

DRUGS (4)
  1. ABILIFY [Suspect]
     Active Substance: ARIPIPRAZOLE
     Indication: BIPOLAR DISORDER
     Route: 048
     Dates: start: 2007, end: 20111021
  2. RITALIN [Suspect]
     Active Substance: METHYLPHENIDATE HYDROCHLORIDE
     Indication: PRODUCT USED FOR UNKNOWN INDICATION
     Route: 048
     Dates: start: 2006, end: 20111021
  3. CONCERTA [Suspect]
     Active Substance: METHYLPHENIDATE HYDROCHLORIDE
     Indication: PRODUCT USED FOR UNKNOWN INDICATION
     Route: 048
     Dates: start: 2006, end: 20111021
  4. CONCOR [Concomitant]
     Active Substance: BISOPROLOL FUMARATE
     Indication: MIGRAINE
     Dosage: UNK
     Route: 065

REACTIONS (4)
  - Speech disorder [Unknown]
  - Horner^s syndrome [Unknown]
  - Hemiplegia [Unknown]
  - Brain stem infarction [Unknown]

NARRATIVE: CASE EVENT DATE: 20111021
